FAERS Safety Report 11976652 (Version 2)
Quarter: 2016Q4

REPORT INFORMATION
  Report Type: Spontaneous
  Country: CA (occurrence: CA)
  Receive Date: 20160129
  Receipt Date: 20161006
  Transmission Date: 20170206
  Serious: Yes (Hospitalization, Disabling)
  Sender: FDA-Public Use
  Company Number: CA-009507513-1601CAN008155

PATIENT
  Sex: Male

DRUGS (2)
  1. TEMODAL [Suspect]
     Active Substance: TEMOZOLOMIDE
     Indication: GLIOBLASTOMA MULTIFORME
     Dosage: 380 MG, DAILY FOR 21 DAYS
     Route: 048
     Dates: start: 201606, end: 201607
  2. TEMODAL [Suspect]
     Active Substance: TEMOZOLOMIDE
     Indication: GLIOBLASTOMA MULTIFORME
     Dosage: 145 MG, DAILY X 5 DAYS
     Route: 048
     Dates: start: 201510, end: 20151211

REACTIONS (3)
  - Drug ineffective [Unknown]
  - Adverse event [Recovering/Resolving]
  - Limb discomfort [Unknown]
